FAERS Safety Report 15079817 (Version 1)
Quarter: 2018Q2

REPORT INFORMATION
  Report Type: Spontaneous
  Country: GB (occurrence: GB)
  Receive Date: 20180627
  Receipt Date: 20180627
  Transmission Date: 20180711
  Serious: Yes (Other)
  Sender: FDA-Public Use
  Company Number: GB-009507513-1806GBR011131

PATIENT
  Age: 19 Year
  Sex: Female

DRUGS (2)
  1. ESTRADIOL. [Suspect]
     Active Substance: ESTRADIOL
     Indication: GENDER REASSIGNMENT THERAPY
     Dosage: UNK
     Route: 065
  2. FINASTERIDE. [Suspect]
     Active Substance: FINASTERIDE
     Indication: GENDER REASSIGNMENT THERAPY
     Dosage: UNK
     Route: 065

REACTIONS (3)
  - Borderline personality disorder [Unknown]
  - Intentional product misuse [Unknown]
  - Trans-sexualism [Unknown]
